FAERS Safety Report 10445612 (Version 4)
Quarter: 2016Q2

REPORT INFORMATION
  Report Type: Spontaneous
  Country: US (occurrence: US)
  Receive Date: 20140910
  Receipt Date: 20160523
  Transmission Date: 20160815
  Serious: Yes (Death, Life-Threatening, Hospitalization, Disabling, Other)
  Sender: FDA-Public Use
  Company Number: US-009507513-1409USA004460

PATIENT
  Sex: Female
  Weight: 51.25 kg

DRUGS (2)
  1. JANUVIA [Suspect]
     Active Substance: SITAGLIPTIN PHOSPHATE
     Indication: TYPE 2 DIABETES MELLITUS
     Dosage: 50 MG, QD
     Route: 048
     Dates: start: 20110518, end: 20120209
  2. JANUVIA [Suspect]
     Active Substance: SITAGLIPTIN PHOSPHATE
     Dosage: 100 MG, QD
     Route: 048
     Dates: start: 20120125, end: 20121107

REACTIONS (22)
  - Metastases to liver [Unknown]
  - Increased tendency to bruise [Unknown]
  - Pulmonary venous thrombosis [Unknown]
  - Atrioventricular block complete [Unknown]
  - Ketosis [Unknown]
  - Metastasis [Unknown]
  - Cholelithiasis [Unknown]
  - Uterine leiomyoma [Unknown]
  - Hypercoagulation [Unknown]
  - Pulmonary mass [Unknown]
  - Loose tooth [Unknown]
  - Emotional distress [Unknown]
  - Pancreatic carcinoma metastatic [Fatal]
  - Thrombosis [Unknown]
  - Ascites [Unknown]
  - Acute kidney injury [Unknown]
  - Tooth extraction [Unknown]
  - Mass [Unknown]
  - Anal incontinence [Unknown]
  - Anaemia [Unknown]
  - Asthenia [Unknown]
  - Biliary dilatation [Unknown]

NARRATIVE: CASE EVENT DATE: 20131210
